FAERS Safety Report 24591153 (Version 1)
Quarter: 2024Q4

REPORT INFORMATION
  Report Type: Spontaneous
  Country: US (occurrence: US)
  Receive Date: 20241108
  Receipt Date: 20241108
  Transmission Date: 20250114
  Serious: Yes (Other)
  Sender: ALEXION PHARMACEUTICALS
  Company Number: US-AstraZeneca-CH-00738476A

PATIENT

DRUGS (4)
  1. IRESSA [Suspect]
     Active Substance: GEFITINIB
  2. IRESSA [Suspect]
     Active Substance: GEFITINIB
  3. IRESSA [Suspect]
     Active Substance: GEFITINIB
  4. IRESSA [Suspect]
     Active Substance: GEFITINIB

REACTIONS (4)
  - Lung neoplasm malignant [Unknown]
  - Metastases to bone [Unknown]
  - Malignant neoplasm progression [Unknown]
  - Drug ineffective [Unknown]
